FAERS Safety Report 11398309 (Version 1)
Quarter: 2015Q3

REPORT INFORMATION
  Report Type: Spontaneous
  Country: US (occurrence: US)
  Receive Date: 20150820
  Receipt Date: 20150820
  Transmission Date: 20151125
  Serious: No
  Sender: FDA-Public Use
  Company Number: US-TEVA-501416USA

PATIENT
  Sex: Female

DRUGS (2)
  1. COMTAN [Concomitant]
     Active Substance: ENTACAPONE
  2. CARBIDOPA AND LEVODOPA [Suspect]
     Active Substance: CARBIDOPA\LEVODOPA
     Indication: PRODUCT USED FOR UNKNOWN INDICATION
     Dosage: 25/100MG
     Route: 065

REACTIONS (1)
  - Blood urine present [Unknown]
